FAERS Safety Report 21117131 (Version 1)
Quarter: 2022Q3

REPORT INFORMATION
  Report Type: Spontaneous
  Country: CZ (occurrence: CZ)
  Receive Date: 20220722
  Receipt Date: 20220722
  Transmission Date: 20221027
  Serious: Yes (Hospitalization, Other)
  Sender: FDA-Public Use
  Company Number: CZ-SUN PHARMACEUTICAL INDUSTRIES LTD-2022RR-342978

PATIENT

DRUGS (5)
  1. PREGABALIN [Suspect]
     Active Substance: PREGABALIN
     Indication: Major depression
     Dosage: 150 MILLIGRAM, TID, 1-1-1
     Route: 065
  2. ASPIRIN [Suspect]
     Active Substance: ASPIRIN
     Indication: Major depression
     Dosage: 100 MILLIGRAM, DAILY, 0-1-0
     Route: 065
  3. RISPERIDONE [Suspect]
     Active Substance: RISPERIDONE
     Indication: Major depression
     Dosage: 1 MILLIGRAM, BID, 1-0-1
     Route: 065
  4. PAROXETINE [Suspect]
     Active Substance: PAROXETINE
     Indication: Major depression
     Dosage: 20 MILLIGRAM, BID, 1-0-1
     Route: 065
  5. PERINDOPRIL [Suspect]
     Active Substance: PERINDOPRIL
     Indication: Major depression
     Dosage: 4 MILLIGRAM, BID, 1-0-1
     Route: 065

REACTIONS (3)
  - Drug interaction [Unknown]
  - Extrapyramidal disorder [Unknown]
  - Constipation [Unknown]
